FAERS Safety Report 9099204 (Version 2)
Quarter: 2013Q1

REPORT INFORMATION
  Report Type: Report from Study
  Country: US (occurrence: US)
  Receive Date: 20130213
  Receipt Date: 20130225
  Transmission Date: 20140127
  Serious: Yes (Life-Threatening, Hospitalization)
  Sender: FDA-Public Use
  Company Number: US-ACTELION-A-US2012-69795

PATIENT
  Age: 33 Year
  Sex: Female

DRUGS (5)
  1. TRACLEER [Suspect]
     Indication: PULMONARY ARTERIAL HYPERTENSION
     Dosage: 125 MG, BID
     Route: 048
  2. COUMADIN [Concomitant]
  3. REMODULIN [Concomitant]
  4. TYVASO [Concomitant]
  5. LASIX [Concomitant]

REACTIONS (4)
  - Wheezing [Unknown]
  - Cardiac failure [Unknown]
  - Pulmonary embolism [Unknown]
  - Dyspnoea [Unknown]
